FAERS Safety Report 10787483 (Version 1)
Quarter: 2015Q1

REPORT INFORMATION
  Report Type: Report from Study
  Country: US (occurrence: US)
  Receive Date: 20150212
  Receipt Date: 20150212
  Transmission Date: 20150721
  Serious: No
  Sender: FDA-Public Use
  Company Number: US-AMGEN-USASL2015009894

PATIENT
  Age: 62 Year
  Sex: Female

DRUGS (1)
  1. ENBREL [Suspect]
     Active Substance: ETANERCEPT
     Indication: PSORIASIS
     Dosage: 50 MG, QWK
     Route: 065
     Dates: start: 20131211, end: 20140730

REACTIONS (10)
  - Lip swelling [Recovered/Resolved]
  - Swelling face [Recovered/Resolved]
  - Pruritus [Recovered/Resolved]
  - Exfoliative rash [Recovered/Resolved]
  - Rash [Recovered/Resolved]
  - Cheilitis [Recovered/Resolved]
  - Oral mucosal eruption [Recovered/Resolved]
  - Mouth swelling [Recovered/Resolved]
  - Rash papular [Recovered/Resolved]
  - Skin reaction [Recovered/Resolved]

NARRATIVE: CASE EVENT DATE: 201407
